FAERS Safety Report 9790295 (Version 5)
Quarter: 2014Q4

REPORT INFORMATION
  Report Type: Report from Study
  Country: CA (occurrence: CA)
  Receive Date: 20131231
  Receipt Date: 20141201
  Transmission Date: 20150529
  Serious: Yes (Hospitalization, Other)
  Sender: FDA-Public Use
  Company Number: CA-ABBVIE-13P-028-1181417-00

PATIENT
  Sex: Female
  Weight: 58 kg

DRUGS (3)
  1. HUMIRA [Suspect]
     Active Substance: ADALIMUMAB
     Indication: RHEUMATOID ARTHRITIS
     Route: 058
  2. AZATHIOPRINE. [Suspect]
     Active Substance: AZATHIOPRINE
     Indication: PRODUCT USED FOR UNKNOWN INDICATION
     Route: 065
  3. HUMIRA [Suspect]
     Active Substance: ADALIMUMAB
     Indication: RHEUMATOID ARTHRITIS
     Route: 058
     Dates: start: 20131129

REACTIONS (10)
  - Back pain [Not Recovered/Not Resolved]
  - Procedural pain [Unknown]
  - Unevaluable event [Not Recovered/Not Resolved]
  - Injection site pain [Unknown]
  - Hyperthermia [Unknown]
  - Ganglioneuroma [Unknown]
  - Drug-induced liver injury [Unknown]
  - Drug intolerance [Unknown]
  - Headache [Unknown]
  - Endodontic procedure [Unknown]
